FAERS Safety Report 13282086 (Version 1)
Quarter: 2017Q1

REPORT INFORMATION
  Report Type: Spontaneous
  Country: US (occurrence: US)
  Receive Date: 20170228
  Receipt Date: 20170228
  Transmission Date: 20170428
  Serious: Yes (Death)
  Sender: FDA-Public Use
  Company Number: None

PATIENT
  Age: 81 Year
  Sex: Female

DRUGS (1)
  1. IBRANCE [Suspect]
     Active Substance: PALBOCICLIB
     Indication: BREAST CANCER
     Dosage: 100MG 1POQDX21DAYS P.O.
     Route: 048
     Dates: start: 20161123, end: 20170221

REACTIONS (1)
  - Hospice care [None]

NARRATIVE: CASE EVENT DATE: 20170222
